FAERS Safety Report 8444995-8 (Version None)
Quarter: 2012Q2

REPORT INFORMATION
  Report Type: 
  Country: None (occurrence: None)
  Receive Date: 20120618
  Receipt Date: 20120615
  Transmission Date: 20120825
  Serious: Yes (Other)
  Sender: FDA-Public Use
  Company Number: IT-BAYER-2012-059811

PATIENT
  Age: 83 Year
  Sex: Male

DRUGS (7)
  1. PROMAZINE HYDROCHLORIDE [Suspect]
     Indication: AGITATION
     Dosage: 10 GTT, ONCE
     Route: 048
     Dates: start: 20120531, end: 20120531
  2. LASIX [Concomitant]
  3. CIPROFLOXACIN HCL [Suspect]
     Indication: URINARY TRACT INFECTION
     Dosage: DAILY DOSE 500 MG
     Route: 048
     Dates: start: 20120528, end: 20120601
  4. FERRO-GRAD FOLIC [Concomitant]
     Dosage: UNK
  5. ROCALTROL [Concomitant]
     Dosage: DAILY DOSE .25 ?G
     Route: 048
  6. OMEPRAZOLE [Concomitant]
     Dosage: DAILY DOSE 20 MG
     Route: 048
  7. NORVASC [Concomitant]
     Dosage: DAILY DOSE 5 MG
     Route: 048

REACTIONS (1)
  - EPILEPSY [None]
